FAERS Safety Report 16261600 (Version 1)
Quarter: 2019Q2

REPORT INFORMATION
  Report Type: Spontaneous
  Country: DE (occurrence: DE)
  Receive Date: 20190501
  Receipt Date: 20190501
  Transmission Date: 20190711
  Serious: Yes (Hospitalization)
  Sender: FDA-Public Use
  Company Number: PHHY2019DE097791

PATIENT
  Age: 54 Year
  Sex: Female

DRUGS (2)
  1. AMLODIPIN 1A PHARMA [Suspect]
     Active Substance: AMLODIPINE BESYLATE
     Indication: PRODUCT USED FOR UNKNOWN INDICATION
     Dosage: 1 DF, QD
     Route: 065
     Dates: start: 20190320
  2. TELMISARTAN HEUMANN [Concomitant]
     Active Substance: TELMISARTAN
     Indication: PRODUCT USED FOR UNKNOWN INDICATION
     Dosage: UNK
     Route: 065

REACTIONS (6)
  - Head injury [Unknown]
  - Syncope [Unknown]
  - Pain [Unknown]
  - Muscle spasms [Unknown]
  - Fall [Unknown]
  - Depression [Unknown]

NARRATIVE: CASE EVENT DATE: 201904
